FAERS Safety Report 7375134-2 (Version None)
Quarter: 2011Q1

REPORT INFORMATION
  Report Type: 
  Country: None (occurrence: None)
  Receive Date: 20110325
  Receipt Date: 20110317
  Transmission Date: 20110831
  Serious: Yes (Hospitalization)
  Sender: FDA-Public Use
  Company Number: IN-KINGPHARMUSA00001-K201100294

PATIENT
  Age: 86 Year
  Sex: Female

DRUGS (7)
  1. OMEPRAZOLE [Concomitant]
  2. ALTACE [Suspect]
     Indication: HYPERTENSION
     Dosage: 5 MG, QD
     Route: 048
     Dates: end: 20110228
  3. ATORVASTATIN CALCIUM [Concomitant]
  4. CO-AMILOFRUSE [Suspect]
     Indication: MYOCARDIAL ISCHAEMIA
     Dosage: UNK
     Route: 048
     Dates: end: 20110302
  5. ASPIRIN [Concomitant]
  6. PARACETAMOL [Concomitant]
  7. ATENOLOL [Concomitant]

REACTIONS (4)
  - DISORIENTATION [None]
  - HYPOTENSION [None]
  - FALL [None]
  - ORTHOSTATIC HYPOTENSION [None]
